FAERS Safety Report 9505859 (Version 1)
Quarter: 2013Q1

REPORT INFORMATION
  Report Type: Spontaneous
  Country: US (occurrence: None)
  Receive Date: 20130219
  Receipt Date: 20130219
  Transmission Date: 20140127
  Serious: Yes (Other)
  Sender: FDA-Public Use
  Company Number: 1207USA009852

PATIENT
  Sex: Male

DRUGS (4)
  1. ZOCOR (SIMVASTATIN) [Suspect]
     Route: 048
  2. PRILOSEC (OMEPRAZOLE) CAPSULE [Suspect]
     Route: 048
  3. ATENOLOL (ATENOLOL) [Suspect]
  4. CLOMIPRAMINE HYDROCHLORIDE [Suspect]

REACTIONS (6)
  - Abdominal pain [None]
  - Constipation [None]
  - Dizziness [None]
  - Dyspepsia [None]
  - Muscular weakness [None]
  - Nausea [None]
